FAERS Safety Report 5854763-9 (Version None)
Quarter: 2008Q3

REPORT INFORMATION
  Report Type: 
  Country: None (occurrence: None)
  Receive Date: 20080822
  Receipt Date: 20071220
  Transmission Date: 20090109
  Serious: No
  Sender: FDA-Public Use
  Company Number: US-ABBOTT-07P-163-0431440-00

PATIENT
  Sex: Female

DRUGS (3)
  1. SYNTHROID [Suspect]
     Indication: HYPOTHYROIDISM
     Route: 048
     Dates: start: 20071201, end: 20071214
  2. SYNTHROID [Suspect]
     Indication: HYPOTHYROIDISM
     Route: 048
     Dates: start: 20020101, end: 20071130
  3. SYNTHROID [Suspect]
     Route: 048
     Dates: start: 20071215

REACTIONS (2)
  - CHEST DISCOMFORT [None]
  - HEART RATE INCREASED [None]
